FAERS Safety Report 23725129 (Version 1)
Quarter: 2024Q2

REPORT INFORMATION
  Report Type: Spontaneous
  Country: US (occurrence: US)
  Receive Date: 20240410
  Receipt Date: 20240410
  Transmission Date: 20240715
  Serious: Yes (Other)
  Sender: FDA-Public Use
  Company Number: US-NOVOPROD-1201147

PATIENT
  Sex: Male

DRUGS (1)
  1. VICTOZA [Suspect]
     Active Substance: LIRAGLUTIDE
     Indication: Product used for unknown indication
     Dosage: UNK
     Route: 058

REACTIONS (6)
  - Suicidal ideation [Unknown]
  - Suicide attempt [Unknown]
  - Product availability issue [Unknown]
  - Mental disorder [Unknown]
  - General physical health deterioration [Unknown]
  - Weight increased [Unknown]
